FAERS Safety Report 23529421 (Version 1)
Quarter: 2024Q1

REPORT INFORMATION
  Report Type: Spontaneous
  Country: PE (occurrence: None)
  Receive Date: 20240216
  Receipt Date: 20240216
  Transmission Date: 20240410
  Serious: Yes (Other)
  Sender: FDA-Public Use
  Company Number: PE-ROCHE-3508161

PATIENT
  Age: 62 Year

DRUGS (1)
  1. AVASTIN [Suspect]
     Active Substance: BEVACIZUMAB
     Indication: Adenocarcinoma metastatic
     Route: 042
     Dates: start: 202310

REACTIONS (2)
  - Off label use [Unknown]
  - Neoplasm progression [Unknown]
